FAERS Safety Report 8924386 (Version 3)
Quarter: 2013Q1

REPORT INFORMATION
  Report Type: Spontaneous
  Country: US (occurrence: US)
  Receive Date: 20121127
  Receipt Date: 20130212
  Transmission Date: 20140127
  Serious: Yes (Hospitalization)
  Sender: FDA-Public Use
  Company Number: US-BAYER-2012-121686

PATIENT
  Age: 35 Year
  Sex: Female
  Weight: 65.76 kg

DRUGS (11)
  1. YAZ [Suspect]
     Indication: CONTRACEPTION
     Dosage: UNK
     Dates: start: 20111026, end: 20120105
  2. YAZ [Suspect]
     Indication: PREMENSTRUAL SYNDROME
     Dosage: UNK
     Dates: start: 200805
  3. YASMIN [Suspect]
     Indication: CONTRACEPTION
     Dosage: UNK
     Dates: start: 20111026, end: 20120105
  4. YASMIN [Suspect]
     Indication: PREMENSTRUAL SYNDROME
     Dosage: UNK
     Dates: start: 200907
  5. OCELLA [Suspect]
     Indication: CONTRACEPTION
     Dosage: UNK
     Dates: start: 201110
  6. OCELLA [Suspect]
     Indication: PREMENSTRUAL SYNDROME
  7. LOPRESSOR [Concomitant]
  8. PROTONIX [Concomitant]
  9. FENTANYL [Concomitant]
  10. VERSED [Concomitant]
  11. MORPHINE [Concomitant]

REACTIONS (11)
  - Myocardial infarction [None]
  - Emotional distress [None]
  - Anhedonia [None]
  - Pain [None]
  - General physical health deterioration [None]
  - Anxiety [None]
  - Injury [None]
  - Pain [None]
  - Dyspnoea [None]
  - Left ventricular dysfunction [None]
  - Coronary artery dissection [None]
